FAERS Safety Report 7479781-9 (Version None)
Quarter: 2011Q2

REPORT INFORMATION
  Report Type: 
  Country: None (occurrence: None)
  Receive Date: 20110513
  Receipt Date: 20110511
  Transmission Date: 20111010
  Serious: Yes (Hospitalization)
  Sender: FDA-Public Use
  Company Number: US-MERCK-1105USA01963

PATIENT
  Age: 56 Year
  Sex: Female

DRUGS (8)
  1. ZETIA [Concomitant]
     Route: 048
  2. JANUVIA [Suspect]
     Indication: DIABETES MELLITUS
     Route: 048
     Dates: start: 20101108, end: 20110314
  3. LIPITOR [Concomitant]
     Route: 065
  4. PRILOSEC [Concomitant]
     Route: 065
  5. CELEXA [Concomitant]
     Route: 065
  6. COZAAR [Concomitant]
     Route: 048
  7. METFORMIN [Concomitant]
     Route: 065
  8. CELEBREX [Concomitant]
     Route: 065

REACTIONS (2)
  - PANCREATITIS ACUTE [None]
  - WEIGHT DECREASED [None]
